FAERS Safety Report 5098768-7 (Version None)
Quarter: 2006Q3

REPORT INFORMATION
  Report Type: 
  Country: None (occurrence: None)
  Receive Date: 20060907
  Receipt Date: 20060831
  Transmission Date: 20061208
  Serious: Yes (Other)
  Sender: FDA-Public Use
  Company Number: CH-GLAXOSMITHKLINE-B0437080A

PATIENT
  Age: 28 Year
  Sex: Female

DRUGS (5)
  1. VENTOLIN [Suspect]
     Indication: ASTHMA
     Route: 055
     Dates: start: 20050314
  2. DIFFERIN [Suspect]
     Indication: ACNE
     Route: 061
     Dates: start: 20040101
  3. SEROPRAM [Suspect]
     Dosage: 20MG PER DAY
     Route: 048
     Dates: start: 20030101
  4. DALACIN T [Suspect]
     Indication: ACNE
     Route: 061
     Dates: start: 20040101
  5. TRICLOSAN [Suspect]
     Indication: ACNE
     Route: 061
     Dates: start: 20040101

REACTIONS (2)
  - ABORTION INDUCED [None]
  - DRUG EXPOSURE DURING PREGNANCY [None]
